FAERS Safety Report 7302713-0 (Version None)
Quarter: 2011Q1

REPORT INFORMATION
  Report Type: 
  Country: None (occurrence: None)
  Receive Date: 20110218
  Receipt Date: 20110211
  Transmission Date: 20110831
  Serious: Yes (Other)
  Sender: FDA-Public Use
  Company Number: US-US-EMD SERONO, INC.-7026538

PATIENT
  Sex: Female

DRUGS (4)
  1. BACLOFEN [Concomitant]
  2. LEXAPRO [Concomitant]
  3. BIRTH CONTROL PILL [Concomitant]
  4. REBIF [Suspect]
     Indication: MULTIPLE SCLEROSIS
     Route: 058
     Dates: start: 20070521, end: 20101107

REACTIONS (6)
  - LUPUS-LIKE SYNDROME [None]
  - BACK PAIN [None]
  - CONNECTIVE TISSUE DISORDER [None]
  - INJECTION SITE ERYTHEMA [None]
  - FIBROMYALGIA [None]
  - HEADACHE [None]
